FAERS Safety Report 22232567 (Version 1)
Quarter: 2023Q2

REPORT INFORMATION
  Report Type: Spontaneous
  Country: US (occurrence: None)
  Receive Date: 20230420
  Receipt Date: 20230420
  Transmission Date: 20230722
  Serious: No
  Sender: FDA-Public Use
  Company Number: US-ROCHE-3071469

PATIENT
  Age: 86 Year
  Sex: Female
  Weight: 41.314 kg

DRUGS (1)
  1. ESBRIET [Suspect]
     Active Substance: PIRFENIDONE
     Indication: Idiopathic pulmonary fibrosis
     Dosage: 2  267 MG TAB PO TID
     Route: 048

REACTIONS (1)
  - Nausea [Recovered/Resolved]
